FAERS Safety Report 5630130-8 (Version None)
Quarter: 2008Q1

REPORT INFORMATION
  Report Type: 
  Country: None (occurrence: None)
  Receive Date: 20080219
  Receipt Date: 20080207
  Transmission Date: 20080703
  Serious: Yes (Disabling, Other)
  Sender: FDA-Public Use
  Company Number: GB-BAYER-200810423BNE

PATIENT
  Age: 61 Year
  Sex: Female

DRUGS (1)
  1. MIRENA [Suspect]
     Indication: ENDOMETRIAL HYPERPLASIA
     Route: 015

REACTIONS (3)
  - PRURITUS [None]
  - RASH [None]
  - URTICARIA [None]
